FAERS Safety Report 7564327-7 (Version None)
Quarter: 2011Q2

REPORT INFORMATION
  Report Type: 
  Country: None (occurrence: None)
  Receive Date: 20110622
  Receipt Date: 20110609
  Transmission Date: 20111010
  Serious: Yes (Hospitalization)
  Sender: FDA-Public Use
  Company Number: PHHY2011KR50636

PATIENT
  Sex: Male
  Weight: 43 kg

DRUGS (2)
  1. EXJADE [Suspect]
     Indication: MYELOFIBROSIS
  2. EXJADE [Suspect]
     Indication: ANAEMIA
     Dosage: 1000 MG
     Route: 048
     Dates: start: 20110418

REACTIONS (3)
  - PYREXIA [None]
  - CELLULITIS [None]
  - OEDEMA PERIPHERAL [None]
